FAERS Safety Report 19889525 (Version 4)
Quarter: 2022Q3

REPORT INFORMATION
  Report Type: Spontaneous
  Country: JP (occurrence: JP)
  Receive Date: 20210928
  Receipt Date: 20220801
  Transmission Date: 20221027
  Serious: Yes (Hospitalization)
  Sender: FDA-Public Use
  Company Number: JP-UCBSA-2021045042

PATIENT
  Age: 31 Year
  Sex: Female
  Weight: 47.7 kg

DRUGS (21)
  1. LEVETIRACETAM [Suspect]
     Active Substance: LEVETIRACETAM
     Indication: Eclampsia
     Dosage: 500 MILLIGRAM, 2X/DAY (BID)
     Route: 041
     Dates: start: 20210907, end: 20210909
  2. LEVETIRACETAM [Suspect]
     Active Substance: LEVETIRACETAM
     Indication: Off label use
  3. LEVETIRACETAM [Suspect]
     Active Substance: LEVETIRACETAM
     Indication: Generalised tonic-clonic seizure
  4. LEVETIRACETAM [Suspect]
     Active Substance: LEVETIRACETAM
     Indication: Eclampsia
     Dosage: 500 MILLIGRAM, 2X/DAY (BID)
     Route: 048
     Dates: start: 20210909, end: 20210913
  5. LEVETIRACETAM [Suspect]
     Active Substance: LEVETIRACETAM
     Indication: Off label use
  6. LEVETIRACETAM [Suspect]
     Active Substance: LEVETIRACETAM
     Indication: Generalised tonic-clonic seizure
  7. FRUCTOSE\GLYCERIN [Suspect]
     Active Substance: FRUCTOSE\GLYCERIN
     Indication: Migraine
     Dosage: UNK
     Route: 042
     Dates: start: 20210907, end: 20210911
  8. VERAPAMIL HYDROCHLORIDE [Suspect]
     Active Substance: VERAPAMIL HYDROCHLORIDE
     Indication: Product used for unknown indication
     Dosage: 40 MILLIGRAM, 3X/DAY (TID)
     Route: 048
     Dates: start: 20210909, end: 20210914
  9. LANSOPRAZOLE [Suspect]
     Active Substance: LANSOPRAZOLE
     Indication: Gastritis
     Route: 048
     Dates: start: 20210909, end: 20210912
  10. MAGNESIUM SULFATE [Suspect]
     Active Substance: MAGNESIUM SULFATE
     Indication: Generalised tonic-clonic seizure
     Dosage: 20 MILLIEQUIVALENT, ONCE DAILY (QD)
     Route: 042
     Dates: start: 20210907, end: 20210913
  11. ACETAMINOPHEN [Suspect]
     Active Substance: ACETAMINOPHEN
     Indication: Migraine
     Dosage: 500 MILLIGRAM, 3X/DAY (TID)
     Route: 042
     Dates: start: 20210907, end: 20210913
  12. ACETAMINOPHEN [Concomitant]
     Active Substance: ACETAMINOPHEN
     Indication: Product used for unknown indication
     Dosage: UNK
     Dates: start: 20210907
  13. DIAZEPAM [Concomitant]
     Active Substance: DIAZEPAM
     Indication: Product used for unknown indication
     Dosage: 10 MILLIGRAM, 3X/DAY (TID)
     Route: 042
     Dates: start: 20210907, end: 20210907
  14. SOSEGON [PENTAZOCINE HYDROCHLORIDE] [Concomitant]
     Indication: Product used for unknown indication
     Dosage: 15MG PER DAY
     Route: 042
     Dates: start: 20210907, end: 20210907
  15. NICARDIPINE HYDROCHLORIDE [Concomitant]
     Active Substance: NICARDIPINE HYDROCHLORIDE
     Indication: Product used for unknown indication
     Dosage: 50MG PER DAY
     Route: 041
     Dates: start: 20210907, end: 20210908
  16. PHENOBARBITAL SODIUM [Concomitant]
     Active Substance: PHENOBARBITAL SODIUM
     Indication: Product used for unknown indication
     Dosage: 750 MILLIGRAM, ONCE DAILY (QD)
     Route: 042
     Dates: start: 20210907, end: 20210907
  17. CEFTRIAXONE SODIUM [Concomitant]
     Active Substance: CEFTRIAXONE SODIUM
     Indication: Infection prophylaxis
     Dosage: 2MG PER DAY
     Route: 048
     Dates: start: 20210907, end: 20210907
  18. CEFTRIAXONE SODIUM [Concomitant]
     Active Substance: CEFTRIAXONE SODIUM
     Indication: Meningitis
  19. NICARDIPINE [Concomitant]
     Active Substance: NICARDIPINE
     Indication: Product used for unknown indication
     Dosage: UNK
  20. SODIUM [Concomitant]
     Active Substance: SODIUM
     Indication: Anaemia
     Route: 048
     Dates: start: 20210909
  21. DEXAMETHASONE SODIUM PHOSPHATE [Concomitant]
     Active Substance: DEXAMETHASONE SODIUM PHOSPHATE
     Indication: Generalised tonic-clonic seizure
     Route: 042
     Dates: start: 20210907, end: 20210907

REACTIONS (3)
  - Rhabdomyolysis [Recovered/Resolved]
  - Hypomagnesaemia [Recovered/Resolved]
  - Off label use [Unknown]

NARRATIVE: CASE EVENT DATE: 20210907
